FAERS Safety Report 18637476 (Version 2)
Quarter: 2020Q4

REPORT INFORMATION
  Report Type: Spontaneous
  Country: US (occurrence: US)
  Receive Date: 20201218
  Receipt Date: 20201223
  Transmission Date: 20210114
  Serious: Yes (Other)
  Sender: FDA-Public Use
  Company Number: US-SA-2020SA360043

PATIENT

DRUGS (1)
  1. TOUJEO [Suspect]
     Active Substance: INSULIN GLARGINE
     Indication: TYPE 2 DIABETES MELLITUS
     Dosage: 30 IU, QD
     Route: 065

REACTIONS (12)
  - Blister [Unknown]
  - Anaphylactic shock [Unknown]
  - Milk allergy [Unknown]
  - Food allergy [Unknown]
  - Cellulitis [Unknown]
  - Arthropod sting [Unknown]
  - Blood glucose increased [Unknown]
  - Anaphylactic reaction [Unknown]
  - Arthropod bite [Unknown]
  - Allergy to chemicals [Unknown]
  - Anxiety [Unknown]
  - Urticaria [Unknown]

NARRATIVE: CASE EVENT DATE: 2019
